FAERS Safety Report 9114845 (Version 1)
Quarter: 2013Q1

REPORT INFORMATION
  Report Type: Spontaneous
  Country: US (occurrence: None)
  Receive Date: 20130225
  Receipt Date: 20130225
  Transmission Date: 20140127
  Serious: Yes (Death)
  Sender: FDA-Public Use
  Company Number: None

PATIENT
  Age: 80 Year
  Sex: Female
  Weight: 99.79 kg

DRUGS (2)
  1. METHYLPREDNISOLONE ACETATE [Suspect]
     Indication: LUMBAR SPINAL STENOSIS
     Dosage: 80MG/ML PRN EPIDURAL
     Route: 008
     Dates: start: 20120717, end: 20120926
  2. METHYLPREDNISOLONE ACETATE [Suspect]
     Indication: SPINAL OSTEOARTHRITIS
     Dosage: 80MG/ML PRN EPIDURAL
     Route: 008
     Dates: start: 20120717, end: 20120926

REACTIONS (7)
  - Extradural abscess [None]
  - Product contamination [None]
  - Urinary incontinence [None]
  - Perineal pain [None]
  - Back pain [None]
  - Pain in extremity [None]
  - Aspergillus test positive [None]
